FAERS Safety Report 24658278 (Version 1)
Quarter: 2024Q4

REPORT INFORMATION
  Report Type: Other
  Country: AU (occurrence: AU)
  Receive Date: 20241125
  Receipt Date: 20241125
  Transmission Date: 20250115
  Serious: Yes (Hospitalization, Congenital Anomaly, Other)
  Sender: BIONPHARMA INC.
  Company Number: AU-Bion-014360

PATIENT
  Sex: Female

DRUGS (1)
  1. IBUPROFEN [Suspect]
     Active Substance: IBUPROFEN
     Indication: Product used for unknown indication

REACTIONS (3)
  - Foetal exposure during pregnancy [Unknown]
  - Papillary muscle rupture [Unknown]
  - Tricuspid valve incompetence [Recovering/Resolving]
